FAERS Safety Report 6700940-4 (Version None)
Quarter: 2010Q2

REPORT INFORMATION
  Report Type: 
  Country: None (occurrence: None)
  Receive Date: 20100428
  Receipt Date: 20100414
  Transmission Date: 20101027
  Serious: Yes (Other)
  Sender: FDA-Public Use
  Company Number: NL-MYLANLABS-2010S1006471

PATIENT
  Age: 31 Year
  Sex: Male

DRUGS (2)
  1. CITALOPRAM HYDROBROMIDE [Suspect]
     Indication: DEPRESSION
  2. DEXAMPHETAMINE [Concomitant]
     Indication: DRUG USE FOR UNKNOWN INDICATION

REACTIONS (6)
  - APATHY [None]
  - DISTURBANCE IN ATTENTION [None]
  - FATIGUE [None]
  - MORBID THOUGHTS [None]
  - PRURITUS [None]
  - SOMNOLENCE [None]
